FAERS Safety Report 19377730 (Version 1)
Quarter: 2021Q2

REPORT INFORMATION
  Report Type: Spontaneous
  Country: ES (occurrence: ES)
  Receive Date: 20210605
  Receipt Date: 20210605
  Transmission Date: 20210717
  Serious: Yes (Other)
  Sender: FDA-Public Use
  Company Number: ES-ACCORD-227079

PATIENT
  Age: 99 Year
  Sex: Female

DRUGS (2)
  1. CEFIXIM [Suspect]
     Active Substance: CEFIXIME
     Indication: URINARY TRACT INFECTION
     Dosage: EFG, 10 TABLET , 400 MG , 1 CP DAY
     Route: 048
     Dates: start: 20210222, end: 20210228
  2. FUROSEMIDE. [Suspect]
     Active Substance: FUROSEMIDE
     Indication: HYPERTENSION
     Dosage: STRENGTH: 40 MG , EFG TABLETS, 10 TABLETS
     Route: 048
     Dates: start: 20160825, end: 20210302

REACTIONS (2)
  - Hyponatraemia [Recovering/Resolving]
  - General physical health deterioration [Recovering/Resolving]

NARRATIVE: CASE EVENT DATE: 20210222
